FAERS Safety Report 14107608 (Version 1)
Quarter: 2017Q4

REPORT INFORMATION
  Report Type: Spontaneous
  Country: US (occurrence: None)
  Receive Date: 20171019
  Receipt Date: 20171019
  Transmission Date: 20180321
  Serious: No
  Sender: FDA-Public Use
  Company Number: None

PATIENT
  Age: 76 Year
  Sex: Female
  Weight: 78.02 kg

DRUGS (10)
  1. ROPINEROLE [Suspect]
     Active Substance: ROPINIROLE
  2. HYDROXCHLOROQUINE [Concomitant]
     Active Substance: HYDROXYCHLOROQUINE
  3. DULOXETINE. [Concomitant]
     Active Substance: DULOXETINE
  4. PRAMIPEXOLE .05 MG TAB [Suspect]
     Active Substance: PRAMIPEXOLE
     Indication: RESTLESS LEGS SYNDROME
     Dates: start: 2013
  5. MULTI VITS [Concomitant]
     Active Substance: VITAMINS
  6. VITAMIN D [Concomitant]
     Active Substance: CHOLECALCIFEROL
  7. ATORVASTATIN [Concomitant]
     Active Substance: ATORVASTATIN
  8. OMEPRAZOLE. [Concomitant]
     Active Substance: OMEPRAZOLE
  9. LEVOTHYROXIN [Concomitant]
     Active Substance: LEVOTHYROXINE
  10. FIORINAL [Concomitant]
     Active Substance: ASPIRIN\BUTALBITAL\CAFFEINE

REACTIONS (7)
  - Depression [None]
  - Nervousness [None]
  - Intentional product use issue [None]
  - Insomnia [None]
  - Impulsive behaviour [None]
  - Gambling [None]
  - Muscle twitching [None]

NARRATIVE: CASE EVENT DATE: 2013
